FAERS Safety Report 8390274-7 (Version None)
Quarter: 2012Q2

REPORT INFORMATION
  Report Type: 
  Country: None (occurrence: None)
  Receive Date: 20120529
  Receipt Date: 20120522
  Transmission Date: 20120825
  Serious: Yes (Other)
  Sender: FDA-Public Use
  Company Number: US-PFIZER INC-2012071467

PATIENT
  Sex: Female
  Weight: 61.224 kg

DRUGS (5)
  1. VISTARIL [Concomitant]
     Indication: ANXIETY
     Dosage: UNK
  2. OXYCODONE [Concomitant]
     Indication: FIBROMYALGIA
     Dosage: UNK
  3. NEURONTIN [Suspect]
     Dosage: UNK
     Route: 048
     Dates: start: 20110901, end: 20120301
  4. OXYCODONE [Concomitant]
     Indication: CHRONIC FATIGUE SYNDROME
  5. NEURONTIN [Suspect]
     Indication: FIBROMYALGIA
     Dosage: 300 MG, UNK
     Route: 048
     Dates: start: 20110201, end: 20110801

REACTIONS (7)
  - VOMITING [None]
  - WITHDRAWAL SYNDROME [None]
  - PAIN [None]
  - PYREXIA [None]
  - HYPERHIDROSIS [None]
  - CHILLS [None]
  - NAUSEA [None]
